FAERS Safety Report 8102276-6 (Version None)
Quarter: 2012Q1

REPORT INFORMATION
  Report Type: 
  Country: None (occurrence: None)
  Receive Date: 20120201
  Receipt Date: 20120126
  Transmission Date: 20120608
  Serious: No
  Sender: FDA-Public Use
  Company Number: US-PFIZER INC-2012022146

PATIENT
  Sex: Female
  Weight: 74.83 kg

DRUGS (4)
  1. CALCIUM [Concomitant]
     Indication: OSTEOPOROSIS
     Dosage: UNK
  2. ADVAIR DISKUS 100/50 [Concomitant]
     Indication: ASTHMA
     Dosage: UNK
  3. EFFEXOR XR [Suspect]
     Indication: ANXIETY
     Dosage: 300 MG, 1X/DAY
     Route: 048
     Dates: end: 20111230
  4. PRISTIQ [Suspect]
     Indication: ANXIETY
     Dosage: 100 MG, 1X/DAY
     Route: 048
     Dates: start: 20111231

REACTIONS (4)
  - WITHDRAWAL SYNDROME [None]
  - DRUG INEFFECTIVE [None]
  - IRRITABILITY [None]
  - ILL-DEFINED DISORDER [None]
